FAERS Safety Report 12699598 (Version 1)
Quarter: 2016Q3

REPORT INFORMATION
  Report Type: Spontaneous
  Country: CN (occurrence: CN)
  Receive Date: 20160830
  Receipt Date: 20160830
  Transmission Date: 20161109
  Serious: Yes (Other)
  Sender: FDA-Public Use
  Company Number: CN-ELI_LILLY_AND_COMPANY-CN201608009555

PATIENT
  Age: 56 Year
  Sex: Male

DRUGS (2)
  1. GLUCOBAY [Concomitant]
     Active Substance: ACARBOSE
     Indication: PRODUCT USED FOR UNKNOWN INDICATION
  2. HUMALOG MIX75/25 [Suspect]
     Active Substance: INSULIN LISPRO
     Indication: DIABETES MELLITUS
     Dosage: UNK UNK, BID
     Route: 058
     Dates: end: 20160817

REACTIONS (3)
  - Drug dose omission [Unknown]
  - Cerebral infarction [Unknown]
  - Hemiplegia [Unknown]

NARRATIVE: CASE EVENT DATE: 20160818
